FAERS Safety Report 10525112 (Version 2)
Quarter: 2014Q4

REPORT INFORMATION
  Report Type: Spontaneous
  Country: FR (occurrence: FR)
  Receive Date: 20141017
  Receipt Date: 20141231
  Transmission Date: 20150528
  Serious: Yes (Life-Threatening, Hospitalization)
  Sender: FDA-Public Use
  Company Number: FR-BAYER-2014-148535

PATIENT
  Age: 28 Year
  Sex: Female

DRUGS (4)
  1. ATARAX [Suspect]
     Active Substance: HYDROXYZINE\HYDROXYZINE HYDROCHLORIDE
     Dosage: 25 MG, UNK
     Dates: start: 20140529, end: 20140529
  2. ADALAT CC [Suspect]
     Active Substance: NIFEDIPINE
     Indication: THREATENED LABOUR
     Dosage: 20 MG, UNK
     Route: 048
     Dates: start: 20140529, end: 20140530
  3. SALBUMOL [Suspect]
     Active Substance: ALBUTEROL SULFATE
     Indication: THREATENED LABOUR
     Dosage: UNK
     Dates: start: 20140529
  4. LOXEN [Suspect]
     Active Substance: NICARDIPINE HYDROCHLORIDE
     Dosage: UNK
     Dates: start: 20140529

REACTIONS (2)
  - Chest pain [Recovered/Resolved]
  - Acute pulmonary oedema [Recovered/Resolved]

NARRATIVE: CASE EVENT DATE: 20140529
